FAERS Safety Report 8525783-0 (Version None)
Quarter: 2012Q3

REPORT INFORMATION
  Report Type: 
  Country: None (occurrence: None)
  Receive Date: 20120720
  Receipt Date: 20120702
  Transmission Date: 20120928
  Serious: No
  Sender: FDA-Public Use
  Company Number: US-009507513-1207USA000896

PATIENT

DRUGS (9)
  1. CALCIUM (UNSPECIFIED) [Concomitant]
  2. ATIVAN [Concomitant]
  3. LEXAPRO [Concomitant]
  4. RIBAVIRIN [Suspect]
     Indication: HEPATITIS C
  5. LEVOTHROID [Concomitant]
  6. NORCO [Concomitant]
  7. BOCEPREVIR [Suspect]
     Indication: HEPATITIS C
     Dosage: 800 MG, TID
     Route: 048
  8. PEGASYS [Suspect]
     Indication: HEPATITIS C
  9. ZEGERID [Concomitant]

REACTIONS (1)
  - BLOOD DISORDER [None]
